FAERS Safety Report 8798632 (Version 4)
Quarter: 2012Q4

REPORT INFORMATION
  Report Type: 
  Country: JP (occurrence: JP)
  Receive Date: 20120920
  Receipt Date: 20121126
  Transmission Date: 20130627
  Serious: Yes (Other)
  Sender: FDA-Public Use
  Company Number: JP-PFIZER INC-2012231827

PATIENT
  Age: 81 Year
  Sex: Male
  Weight: 48 kg

DRUGS (7)
  1. LIPITOR [Suspect]
     Indication: HYPER LDL CHOLESTEROLAEMIA
     Dosage: 10 mg, 1x/day
     Route: 048
     Dates: start: 20120703, end: 20120919
  2. MAINTATE [Concomitant]
     Indication: MYOCARDIAL INFARCTION
     Dosage: 5 mg, 1x/day
     Route: 048
     Dates: start: 20091226
  3. ROCORNAL [Concomitant]
     Indication: MYOCARDIAL INFARCTION
     Dosage: 100 mg, 3x/day
     Route: 048
     Dates: start: 20091226
  4. BAYASPIRIN [Concomitant]
     Indication: MYOCARDIAL INFARCTION
     Dosage: 100 mg, 1x/day
     Route: 048
     Dates: start: 20091226
  5. TAMSULOSIN HYDROCHLORIDE [Concomitant]
     Indication: PROSTATIC HYPERTROPHY
     Dosage: 0.2 mg, 1x/day
     Route: 048
     Dates: start: 20070404
  6. MAGNESIUM OXIDE [Concomitant]
     Indication: CONSTIPATION
     Dosage: 330 mg, 3x/day
     Route: 048
     Dates: start: 20070404
  7. LENDORMIN [Concomitant]
     Indication: INSOMNIA
     Dosage: 0.2 mg, 1x/day
     Route: 048
     Dates: start: 20001012

REACTIONS (2)
  - Gamma-glutamyltransferase increased [Recovered/Resolved]
  - Blood alkaline phosphatase increased [Unknown]
